FAERS Safety Report 6083825-9 (Version None)
Quarter: 2009Q1

REPORT INFORMATION
  Report Type: 
  Country: None (occurrence: None)
  Receive Date: 20090219
  Receipt Date: 20090206
  Transmission Date: 20090719
  Serious: Yes (Hospitalization, Other)
  Sender: FDA-Public Use
  Company Number: CA-ELI_LILLY_AND_COMPANY-CA200901001844

PATIENT
  Sex: Female

DRUGS (1)
  1. FORTEO [Suspect]
     Indication: OSTEOPOROSIS
     Dosage: 20 UG, DAILY (1/D)
     Route: 058
     Dates: start: 20080825

REACTIONS (7)
  - ATELECTASIS [None]
  - ATRIAL FIBRILLATION [None]
  - GAIT DISTURBANCE [None]
  - LUNG INJURY [None]
  - PERICARDIAL EFFUSION [None]
  - PNEUMOTHORAX [None]
  - RIB FRACTURE [None]
